FAERS Safety Report 8396968-1 (Version None)
Quarter: 2012Q2

REPORT INFORMATION
  Report Type: 
  Country: None (occurrence: None)
  Receive Date: 20120530
  Receipt Date: 20120522
  Transmission Date: 20120825
  Serious: Yes (Death, Hospitalization, Other)
  Sender: FDA-Public Use
  Company Number: US-MILLENNIUM PHARMACEUTICALS, INC.-2012-03624

PATIENT
  Age: 55 Year
  Sex: Female
  Weight: 36.36 kg

DRUGS (4)
  1. VELCADE [Suspect]
     Indication: OVARIAN EPITHELIAL CANCER
     Dosage: 0.5 MG/M2, CYCLIC
     Route: 033
     Dates: start: 20110722, end: 20110811
  2. OXYCODONE HCL [Concomitant]
     Indication: PAIN
     Dosage: 20 MG, PRN
  3. OXYCONTIN [Concomitant]
     Indication: PAIN
     Dosage: 80 MG, UNK
  4. CARBOPLATIN [Suspect]
     Indication: OVARIAN EPITHELIAL CANCER
     Dosage: UNK
     Route: 033
     Dates: start: 20110722, end: 20110811

REACTIONS (7)
  - DIZZINESS [None]
  - HEPATIC FAILURE [None]
  - PAIN [None]
  - BLOOD CREATININE INCREASED [None]
  - DECREASED APPETITE [None]
  - FATIGUE [None]
  - CONSTIPATION [None]
